FAERS Safety Report 16596062 (Version 5)
Quarter: 2022Q3

REPORT INFORMATION
  Report Type: Spontaneous
  Country: FR (occurrence: FR)
  Receive Date: 20190719
  Receipt Date: 20220712
  Transmission Date: 20221027
  Serious: Yes (Hospitalization, Other)
  Sender: FDA-Public Use
  Company Number: FR-AFSSAPS-CN20190821

PATIENT
  Age: 61 Year
  Sex: Male
  Weight: 83.6 kg

DRUGS (11)
  1. ATORVASTATIN [Suspect]
     Active Substance: ATORVASTATIN
     Indication: Hypercholesterolaemia
     Dosage: 40 MILLIGRAM, ONCE A DAY,0-0-1
     Route: 048
     Dates: start: 20190522, end: 20190619
  2. FLUCONAZOLE [Suspect]
     Active Substance: FLUCONAZOLE
     Indication: Fungal infection
     Dosage: 400 MILLIGRAM, ONCE A DAY,2-0-0
     Route: 048
     Dates: start: 20190524, end: 20190527
  3. VALACYCLOVIR [Suspect]
     Active Substance: VALACYCLOVIR HYDROCHLORIDE
     Indication: Antiviral treatment
     Dosage: 1000 MILLIGRAM, ONCE A DAY,1-0-1
     Route: 048
     Dates: start: 20190523
  4. EXJADE [Suspect]
     Active Substance: DEFERASIROX
     Indication: Iron overload
     Dosage: 360 MILLIGRAM, ONCE A DAY,1-0-1
     Route: 048
     Dates: start: 20190523, end: 20190525
  5. EXJADE [Suspect]
     Active Substance: DEFERASIROX
     Dosage: 180 MILLIGRAM, ONCE A DAY
     Route: 048
     Dates: start: 20190525, end: 20190531
  6. EXJADE [Suspect]
     Active Substance: DEFERASIROX
     Dosage: 360 MILLIGRAM, ONCE A DAY,1-0-1
     Route: 048
     Dates: start: 20190606, end: 20190616
  7. NOXAFIL [Suspect]
     Active Substance: POSACONAZOLE
     Indication: Fungal infection
     Dosage: 300 MILLIGRAM, ONCE A DAY,QD,3-0-0
     Route: 048
     Dates: start: 20190528
  8. PIPERACILLIN SODIUM\TAZOBACTAM SODIUM [Suspect]
     Active Substance: PIPERACILLIN SODIUM\TAZOBACTAM SODIUM
     Indication: Infection
     Dosage: 4 DOSAGE FORM, ONCE A DAY
     Route: 042
     Dates: start: 20190526, end: 20190621
  9. VYXEOS [Suspect]
     Active Substance: CYTARABINE\DAUNORUBICIN
     Indication: Acute myeloid leukaemia
     Dosage: 1 DOSAGE FORM, 1 CYCLE,CYCLICAL,86/195 MG PERF FROM 90MIN TO D1, D3, D5
     Route: 042
     Dates: start: 20190524
  10. CYTARABINE\DAUNORUBICIN [Suspect]
     Active Substance: CYTARABINE\DAUNORUBICIN
     Indication: Acute myeloid leukaemia
     Dosage: 1 DOSAGE FORM, CYCLICAL, 86/195 MG PERF OF 90MIN ON D1, D3, D5
     Route: 042
     Dates: start: 20190524
  11. CRESTOR [Concomitant]
     Active Substance: ROSUVASTATIN CALCIUM
     Indication: Hypercholesterolaemia
     Dosage: 5 MILLIGRAM, ONCE A DAY, QD
     Route: 048

REACTIONS (3)
  - Hepatic cytolysis [Recovering/Resolving]
  - Cholestasis [Recovering/Resolving]
  - Condition aggravated [Recovering/Resolving]

NARRATIVE: CASE EVENT DATE: 20190530
